FAERS Safety Report 16051828 (Version 1)
Quarter: 2019Q1

REPORT INFORMATION
  Report Type: Spontaneous
  Country: US (occurrence: US)
  Receive Date: 20190308
  Receipt Date: 20190308
  Transmission Date: 20190418
  Serious: Yes (Other)
  Sender: FDA-Public Use
  Company Number: US-TEVA-2019-US-1021351

PATIENT
  Sex: Female
  Weight: 72.64 kg

DRUGS (4)
  1. CRESTOR [Concomitant]
     Active Substance: ROSUVASTATIN CALCIUM
     Indication: BLOOD CHOLESTEROL INCREASED
     Dosage: 5 MILLIGRAM DAILY;
     Route: 048
  2. AZITHROMYCIN-GENERIC ZITHROMAX [Suspect]
     Active Substance: AZITHROMYCIN
     Dosage: 500 MG TWO TABLETS ON THE FIRST DAY AND 250 MG FOR FOUR CONSECUTIVE DAYS BY MOUTH
  3. AZITHROMYCIN-GENERIC ZITHROMAX [Suspect]
     Active Substance: AZITHROMYCIN
     Indication: SINUSITIS
     Dosage: 500 MG TWO TABLETS ON THE FIRST DAY AND 250 MG FOR FOUR CONSECUTIVE DAYS BY MOUTH
  4. AMOXICILLIN. [Concomitant]
     Active Substance: AMOXICILLIN

REACTIONS (3)
  - Dyspnoea [Recovered/Resolved]
  - Product substitution issue [None]
  - Heart rate increased [Recovered/Resolved]
